FAERS Safety Report 9310151 (Version 1)
Quarter: 2013Q2

REPORT INFORMATION
  Report Type: Spontaneous
  Country: US (occurrence: US)
  Receive Date: 20130527
  Receipt Date: 20130527
  Transmission Date: 20140414
  Serious: Yes (Other)
  Sender: FDA-Public Use
  Company Number: US-AMGEN-USASP2013036381

PATIENT
  Age: 57 Year
  Sex: Female

DRUGS (1)
  1. ENBREL [Suspect]
     Indication: RHEUMATOID ARTHRITIS
     Dosage: UNK MG, QWK
     Dates: start: 20121115, end: 20130514

REACTIONS (3)
  - Pain in extremity [Not Recovered/Not Resolved]
  - Mental impairment [Not Recovered/Not Resolved]
  - Hand deformity [Not Recovered/Not Resolved]
